FAERS Safety Report 12276376 (Version 7)
Quarter: 2017Q1

REPORT INFORMATION
  Report Type: Report from Study
  Country: BR (occurrence: BR)
  Receive Date: 20160418
  Receipt Date: 20170331
  Transmission Date: 20170428
  Serious: Yes (Other)
  Sender: FDA-Public Use
  Company Number: BR-JNJFOC-20160416365

PATIENT
  Sex: Male
  Weight: 63 kg

DRUGS (10)
  1. MAGNESIUM [Concomitant]
     Active Substance: MAGNESIUM
     Route: 065
  2. FLORATIL [Concomitant]
     Route: 065
  3. SIMPONI [Suspect]
     Active Substance: GOLIMUMAB
     Indication: ANKYLOSING SPONDYLITIS
     Route: 058
     Dates: start: 20150529
  4. VITAMIN K [Concomitant]
     Active Substance: PHYTONADIONE
     Route: 065
  5. BENICAR [Concomitant]
     Active Substance: OLMESARTAN MEDOXOMIL
     Route: 065
  6. SIMPONI [Suspect]
     Active Substance: GOLIMUMAB
     Indication: RHEUMATOID ARTHRITIS
     Route: 058
     Dates: start: 20150529
  7. HYDROCORTISONE. [Concomitant]
     Active Substance: HYDROCORTISONE
     Route: 065
  8. NICOTINAMIDE [Concomitant]
     Active Substance: NIACINAMIDE
     Route: 065
  9. GLUTATHIONE [Concomitant]
     Active Substance: GLUTATHIONE
     Route: 065
  10. KETOPROFEN. [Concomitant]
     Active Substance: KETOPROFEN
     Route: 065

REACTIONS (10)
  - Genital herpes [Recovered/Resolved]
  - Prostatomegaly [Unknown]
  - Oral herpes [Recovered/Resolved]
  - Stomatitis [Unknown]
  - Dysbacteriosis [Unknown]
  - Gastrointestinal disorder [Unknown]
  - Arthralgia [Recovering/Resolving]
  - Chikungunya virus infection [Recovered/Resolved]
  - Epstein-Barr virus test positive [Recovered/Resolved]
  - Decreased immune responsiveness [Unknown]
